FAERS Safety Report 20746106 (Version 1)
Quarter: 2022Q2

REPORT INFORMATION
  Report Type: Spontaneous
  Country: IT (occurrence: IT)
  Receive Date: 20220425
  Receipt Date: 20220425
  Transmission Date: 20220721
  Serious: Yes (Other)
  Sender: FDA-Public Use
  Company Number: None

PATIENT
  Age: 71 Year
  Sex: Female
  Weight: 52 kg

DRUGS (4)
  1. CARBOPLATIN [Suspect]
     Active Substance: CARBOPLATIN
     Indication: Ovarian cancer
     Dosage: 300MG
     Route: 042
     Dates: start: 20211227, end: 20211227
  2. ONDANSETRON [Concomitant]
     Active Substance: ONDANSETRON
     Indication: Prophylaxis of nausea and vomiting
     Dosage: STRENGTH:8 MG / 4 ML,8MG
     Route: 042
     Dates: start: 20211227, end: 20211227
  3. DECADRON [Concomitant]
     Active Substance: DEXAMETHASONE
     Indication: Chemotherapy side effect prophylaxis
     Dosage: DECADRON 8MG / 2ML SOLUTION FOR INJECTION 1 VIAL OF 2 ML,8MG
     Route: 042
     Dates: start: 20211227, end: 20211227
  4. OMEPRAZOLE MYLAN GENERICS ITALY [Concomitant]
     Indication: Chemotherapy side effect prophylaxis
     Dosage: STRENGTH 40MG, UNIT DOSE: 40 MG
     Route: 042
     Dates: start: 20211227, end: 20211227

REACTIONS (4)
  - Throat tightness [Recovered/Resolved]
  - Malaise [Recovered/Resolved]
  - Pruritus [Recovered/Resolved]
  - Rash [Recovered/Resolved]

NARRATIVE: CASE EVENT DATE: 20211227
